FAERS Safety Report 15919615 (Version 3)
Quarter: 2021Q1

REPORT INFORMATION
  Report Type: Spontaneous
  Country: US (occurrence: US)
  Receive Date: 20190205
  Receipt Date: 20210226
  Transmission Date: 20210419
  Serious: No
  Sender: FDA-Public Use
  Company Number: US-ROCHE-2104052

PATIENT
  Age: 69 Year
  Sex: Female

DRUGS (2)
  1. XOLAIR [Suspect]
     Active Substance: OMALIZUMAB
     Indication: IDIOPATHIC URTICARIA
     Dosage: 150 SDV
     Route: 058
     Dates: start: 20170718
  2. XOLAIR [Suspect]
     Active Substance: OMALIZUMAB
     Dosage: 150 SD
     Route: 058
     Dates: start: 20170717

REACTIONS (2)
  - Injection site bruising [Unknown]
  - Pruritus [Not Recovered/Not Resolved]

NARRATIVE: CASE EVENT DATE: 20180405
